FAERS Safety Report 7580912-0 (Version None)
Quarter: 2011Q2

REPORT INFORMATION
  Report Type: 
  Country: None (occurrence: None)
  Receive Date: 20110629
  Receipt Date: 20110622
  Transmission Date: 20111010
  Serious: Yes (Life-Threatening, Hospitalization, Disabling, Other)
  Sender: FDA-Public Use
  Company Number: US-MERCK-1106USA03153

PATIENT
  Age: 22 Year
  Sex: Female

DRUGS (2)
  1. ASPIRIN [Concomitant]
     Route: 065
  2. MAXALT-MLT [Suspect]
     Indication: MIGRAINE
     Route: 048
     Dates: start: 20070101, end: 20110613

REACTIONS (1)
  - CEREBROVASCULAR ACCIDENT [None]
